FAERS Safety Report 9418928 (Version 1)
Quarter: 2013Q3

REPORT INFORMATION
  Report Type: Spontaneous
  Country: US (occurrence: US)
  Receive Date: 20130725
  Receipt Date: 20130725
  Transmission Date: 20140515
  Serious: Yes (Other)
  Sender: FDA-Public Use
  Company Number: US-ELI_LILLY_AND_COMPANY-US201307005916

PATIENT
  Age: 53 Year
  Sex: Female

DRUGS (1)
  1. HUMALOG LISPRO [Suspect]
     Indication: TYPE 2 DIABETES MELLITUS
     Dosage: UNK UNK, PRN
     Dates: start: 201301

REACTIONS (7)
  - Loss of consciousness [Recovered/Resolved]
  - Blood glucose increased [Unknown]
  - Lethargy [Unknown]
  - Confusional state [Unknown]
  - Dizziness [Unknown]
  - Infection [Unknown]
  - Drug ineffective [Unknown]
